FAERS Safety Report 18015224 (Version 1)
Quarter: 2020Q3

REPORT INFORMATION
  Report Type: Spontaneous
  Country: US (occurrence: US)
  Receive Date: 20200713
  Receipt Date: 20200713
  Transmission Date: 20201103
  Serious: No
  Sender: FDA-Public Use
  Company Number: US-FOUNDATIONCONSUMERHC-2020-US-009098

PATIENT
  Age: 33 Year
  Sex: Female
  Weight: 99.79 kg

DRUGS (4)
  1. PARIGARD [Concomitant]
     Dates: start: 2017
  2. LAMICTAL/LAMOTRIGINE [Concomitant]
  3. PROAIR HFA [Concomitant]
     Active Substance: ALBUTEROL SULFATE
  4. PLAN B ONE?STEP [Suspect]
     Active Substance: LEVONORGESTREL
     Indication: POST COITAL CONTRACEPTION
     Dosage: 1.5 MG X 1 DOSE
     Route: 048
     Dates: start: 20200429, end: 20200429

REACTIONS (5)
  - Product use in unapproved indication [Recovered/Resolved]
  - Intentional product misuse [Recovered/Resolved]
  - Vaginal haemorrhage [Recovered/Resolved]
  - Menstruation delayed [Not Recovered/Not Resolved]
  - Dysmenorrhoea [Unknown]

NARRATIVE: CASE EVENT DATE: 20200429
